FAERS Safety Report 9718076 (Version 1)
Quarter: 2013Q4

REPORT INFORMATION
  Report Type: Not Available
  Country: US (occurrence: US)
  Receive Date: 20131125
  Receipt Date: 20131125
  Transmission Date: 20140711
  Serious: No
  Sender: FDA-Public Use
  Company Number: US-VIVUS-2013V1000511

PATIENT
  Sex: Female
  Weight: 93.98 kg

DRUGS (17)
  1. QSYMIA 3.75MG/23MG [Suspect]
     Indication: WEIGHT DECREASED
     Route: 048
  2. QSYMIA 7.5MG/46MG [Suspect]
     Indication: WEIGHT DECREASED
     Route: 048
     Dates: start: 201306
  3. CALCIUM CITRATE + VITAMID D [Concomitant]
     Indication: OSTEOPOROSIS
     Dosage: STARTED 5 YEARS AGO
     Route: 048
     Dates: start: 2008
  4. SPECTRA SENIOR VITAMINS [Concomitant]
     Indication: VITAMIN SUPPLEMENTATION
     Dosage: STARTED 5 YEARS AGO
     Route: 048
     Dates: start: 2008
  5. LIALDA DR [Concomitant]
     Indication: COLITIS
     Dosage: STARTED YEARS AGO
     Route: 048
  6. MAGNESIUM [Concomitant]
     Indication: MUSCLE DISORDER
     Dosage: STARTED 2 MONTHS AGO
     Route: 048
     Dates: start: 2013
  7. MAGNESIUM [Concomitant]
     Indication: ACCESSORY NERVE DISORDER
  8. PERPHENAZINE/AMITRIPTYLINE [Concomitant]
     Indication: MENTAL DISORDER
     Dosage: 2MG-10MG
     Route: 048
  9. CATAPRES-TTS [Concomitant]
     Indication: HYPERTENSION
     Dosage: STARTED SINCE 1983
     Route: 062
     Dates: start: 1983
  10. MICARDIS [Concomitant]
     Indication: RENAL DISORDER
     Dosage: STARTED 10 YEARS AGO
     Route: 048
     Dates: start: 2003
  11. CARVEDILOL [Concomitant]
     Indication: CARDIAC DISORDER
     Dosage: STARTED 1 YEAR AGO
     Route: 048
     Dates: start: 2012
  12. ISOSORBIDE MN ER [Concomitant]
     Indication: HYPERTENSION
     Dosage: STARTED 1 YEAR AGO
     Route: 048
     Dates: start: 2012
  13. TOPIRAMATE [Concomitant]
     Indication: HEADACHE
     Dosage: STARTED 7-8 YEARS AGO
     Route: 048
  14. PANTOPRAZOLE [Concomitant]
     Indication: GASTROOESOPHAGEAL REFLUX DISEASE
     Route: 048
  15. FUROSEMIDE [Concomitant]
     Indication: DIURETIC THERAPY
     Dosage: STARTED 1 YEAR AGO
     Route: 048
     Dates: start: 2012
  16. LEVOTHYROXINE [Concomitant]
     Indication: HYPOTHYROIDISM
     Dosage: STARTED 15 YEARS AGO
     Route: 048
     Dates: start: 1998
  17. POTASSIUM CL [Concomitant]
     Indication: MINERAL SUPPLEMENTATION
     Dosage: STARTED 1 YEAR AGO
     Dates: start: 2012

REACTIONS (1)
  - Headache [Not Recovered/Not Resolved]
